FAERS Safety Report 12337148 (Version 1)
Quarter: 2016Q2

REPORT INFORMATION
  Report Type: Spontaneous
  Country: US (occurrence: None)
  Receive Date: 20160504
  Receipt Date: 20160504
  Transmission Date: 20160815
  Serious: Yes (Life-Threatening)
  Sender: FDA-Public Use
  Company Number: None

PATIENT
  Age: 30 Year
  Sex: Female
  Weight: 54.43 kg

DRUGS (9)
  1. ABILIFY [Concomitant]
     Active Substance: ARIPIPRAZOLE
  2. PRESCRIPED [Concomitant]
  3. COGENTIN [Concomitant]
     Active Substance: BENZTROPINE MESYLATE
  4. BENADRYL [Concomitant]
     Active Substance: DIPHENHYDRAMINE HYDROCHLORIDE
  5. HALDOL [Suspect]
     Active Substance: HALOPERIDOL
  6. INVEGA [Concomitant]
     Active Substance: PALIPERIDONE
  7. INVEGA [Suspect]
     Active Substance: PALIPERIDONE
     Indication: PSYCHOTIC DISORDER
     Dosage: 1 PILL (TABLE) ONCE A DAY 8:00AM PO (BY MOUTH)
     Route: 048
     Dates: start: 20150501, end: 20150515
  8. ATIVAN [Concomitant]
     Active Substance: LORAZEPAM
  9. RISPERDAL [Suspect]
     Active Substance: RISPERIDONE

REACTIONS (10)
  - Tremor [None]
  - Heart rate increased [None]
  - Seizure [None]
  - Headache [None]
  - Constipation [None]
  - Pollakiuria [None]
  - Pain [None]
  - Dizziness [None]
  - Malaise [None]
  - Confusional state [None]

NARRATIVE: CASE EVENT DATE: 20150501
